FAERS Safety Report 6519854-8 (Version None)
Quarter: 2009Q4

REPORT INFORMATION
  Report Type: 
  Country: None (occurrence: None)
  Receive Date: 20091228
  Receipt Date: 20091228
  Transmission Date: 20100525
  Serious: Yes (Other)
  Sender: FDA-Public Use
  Company Number: None

PATIENT
  Age: 56 Year
  Sex: Female
  Weight: 79.3795 kg

DRUGS (2)
  1. DIPRIVAN [Suspect]
     Indication: ACUTE RESPIRATORY DISTRESS SYNDROME
     Dosage: IV
     Route: 042
     Dates: start: 20091125, end: 20091212
  2. DIPRIVAN [Suspect]
     Indication: MECHANICAL VENTILATION
     Dosage: IV
     Route: 042
     Dates: start: 20091125, end: 20091212

REACTIONS (3)
  - MEMORY IMPAIRMENT [None]
  - MUSCULAR WEAKNESS [None]
  - TREMOR [None]
